FAERS Safety Report 25689707 (Version 2)
Quarter: 2025Q4

REPORT INFORMATION
  Report Type: Spontaneous
  Country: EU (occurrence: EU)
  Receive Date: 20250818
  Receipt Date: 20251028
  Transmission Date: 20260118
  Serious: Yes (Hospitalization, Other)
  Sender: BAXTER
  Company Number: None

PATIENT
  Age: 52 Year
  Sex: Male
  Weight: 72 kg

DRUGS (1)
  1. SODIUM CHLORIDE [Suspect]
     Active Substance: SODIUM CHLORIDE
     Indication: Hyponatraemia
     Dosage: 13.9 G, QD
     Route: 042
     Dates: start: 20250616, end: 20250621

REACTIONS (2)
  - Rapid correction of hyponatraemia [Recovered/Resolved]
  - Osmotic demyelination syndrome [Recovering/Resolving]

NARRATIVE: CASE EVENT DATE: 20250616
